FAERS Safety Report 5484885-6 (Version None)
Quarter: 2007Q4

REPORT INFORMATION
  Report Type: 
  Country: None (occurrence: None)
  Receive Date: 20071010
  Receipt Date: 20070927
  Transmission Date: 20080405
  Serious: Yes (Death)
  Sender: FDA-Public Use
  Company Number: 070928-0000962

PATIENT
  Age: 54 Year
  Sex: Male
  Weight: 51 kg

DRUGS (1)
  1. DESOXYN [Suspect]
     Indication: DRUG USE FOR UNKNOWN INDICATION

REACTIONS (16)
  - AMPHETAMINES POSITIVE [None]
  - BLOOD PRESSURE INCREASED [None]
  - BRAIN OEDEMA [None]
  - BRAIN STEM HAEMORRHAGE [None]
  - CARDIOMEGALY [None]
  - CEREBRAL HAEMATOMA [None]
  - CORONARY ARTERY STENOSIS [None]
  - DRUG ABUSER [None]
  - HAEMORRHAGE SUBCUTANEOUS [None]
  - HYPOAESTHESIA [None]
  - INJECTION SITE INJURY [None]
  - MYOCARDIAL FIBROSIS [None]
  - NAUSEA [None]
  - PULMONARY OEDEMA [None]
  - VASCULITIS CEREBRAL [None]
  - VASCULITIS NECROTISING [None]
